FAERS Safety Report 10252403 (Version 2)
Quarter: 2014Q3

REPORT INFORMATION
  Report Type: Spontaneous
  Country: JP (occurrence: None)
  Receive Date: 20140619
  Receipt Date: 20140813
  Transmission Date: 20150326
  Serious: Yes (Other)
  Sender: FDA-Public Use
  Company Number: 2014-JP-0036

PATIENT
  Age: 76 Year
  Sex: Female

DRUGS (3)
  1. FARESTON [Suspect]
     Active Substance: TOREMIFENE CITRATE
     Indication: BREAST CANCER RECURRENT
     Route: 048
     Dates: start: 20140402, end: 20140402
  2. FASLODEX [Concomitant]
     Active Substance: FULVESTRANT
     Dates: start: 20140409
  3. FARESTON [Suspect]
     Active Substance: TOREMIFENE CITRATE
     Dates: start: 20140409

REACTIONS (2)
  - Bronchitis [None]
  - Asphyxia [None]

NARRATIVE: CASE EVENT DATE: 20140402
